FAERS Safety Report 9202525 (Version 3)
Quarter: 2013Q2

REPORT INFORMATION
  Report Type: Spontaneous
  Country: US (occurrence: US)
  Receive Date: 20130401
  Receipt Date: 20130419
  Transmission Date: 20140414
  Serious: No
  Sender: FDA-Public Use
  Company Number: US-PFIZER INC-2013102316

PATIENT
  Age: 65 Year
  Sex: Female

DRUGS (15)
  1. CELEBREX [Suspect]
     Dosage: UNK
  2. DEXAMETHASONE SODIUM PHOSPHATE [Suspect]
     Dosage: UNK
  3. MORPHINE SULFATE [Suspect]
     Dosage: UNK
  4. PREDNISONE [Suspect]
     Dosage: UNK
  5. PERCODAN [Suspect]
     Dosage: UNK
  6. PEPCID [Suspect]
     Dosage: UNK
  7. FENOFIBRATE [Suspect]
     Dosage: UNK
  8. CEFTIN [Suspect]
     Dosage: UNK
  9. CODEINE [Suspect]
     Dosage: UNK
  10. ULTRAM [Suspect]
     Dosage: UNK
  11. DROPERIDOL [Suspect]
     Dosage: UNK
  12. PROCHLORPERAZINE [Suspect]
     Dosage: UNK
  13. INAPSINE [Suspect]
     Dosage: UNK
  14. BACTRIM DS [Suspect]
     Dosage: UNK
  15. COMPAZINE [Suspect]
     Dosage: UNK

REACTIONS (1)
  - Drug hypersensitivity [Unknown]
